FAERS Safety Report 4667562-0 (Version None)
Quarter: 2005Q2

REPORT INFORMATION
  Report Type: 
  Country: None (occurrence: None)
  Receive Date: 20050520
  Receipt Date: 20041110
  Transmission Date: 20051028
  Serious: Yes (Other)
  Sender: FDA-Public Use
  Company Number: PHEH2004US12521

PATIENT
  Age: 73 Year
  Sex: Male

DRUGS (6)
  1. LUPRON [Concomitant]
     Indication: PROSTATE CANCER
     Dates: start: 19970101
  2. DES [Concomitant]
     Indication: PROSTATE CANCER
  3. COUMADIN [Concomitant]
     Indication: THROMBOSIS
  4. KETOCONAZOLE [Concomitant]
     Indication: PROSTATE CANCER
     Dates: start: 20030701, end: 20040201
  5. TRILOSTANE [Concomitant]
     Indication: PROSTATE CANCER
     Dates: start: 20040701
  6. ZOMETA [Suspect]
     Dosage: 4 MG, QMO
     Dates: start: 20020101

REACTIONS (5)
  - BONE DISORDER [None]
  - DENTAL CARIES [None]
  - LOCAL ANAESTHESIA [None]
  - MOUTH ULCERATION [None]
  - OSTEONECROSIS [None]
